FAERS Safety Report 4484921-X (Version None)
Quarter: 2004Q3

REPORT INFORMATION
  Report Type: 
  Country: None (occurrence: None)
  Receive Date: 20040921
  Receipt Date: 20030811
  Transmission Date: 20050211
  Serious: Yes (Hospitalization)
  Sender: FDA-Public Use
  Company Number: 163-20785-03080344

PATIENT
  Age: 36 Year
  Sex: Male

DRUGS (2)
  1. THALOMID [Suspect]
     Indication: COLITIS
     Dosage: 200 MG, DAILY, ORAL
     Route: 048
     Dates: start: 20030731, end: 20030804
  2. SEPTRA [Concomitant]

REACTIONS (5)
  - ANAEMIA [None]
  - PANCYTOPENIA [None]
  - PLATELET COUNT DECREASED [None]
  - STAPHYLOCOCCAL BACTERAEMIA [None]
  - WHITE BLOOD CELL COUNT DECREASED [None]
